FAERS Safety Report 18023031 (Version 1)
Quarter: 2020Q3

REPORT INFORMATION
  Report Type: Report from Study
  Country: BR (occurrence: BR)
  Receive Date: 20200714
  Receipt Date: 20200714
  Transmission Date: 20201103
  Serious: Yes (Other)
  Sender: FDA-Public Use
  Company Number: NVSC2020BR195727

PATIENT
  Sex: Female
  Weight: 56 kg

DRUGS (1)
  1. ENTRESTO [Suspect]
     Active Substance: SACUBITRIL\VALSARTAN
     Indication: CARDIAC FAILURE
     Dosage: UNK (STARTED ABOUT 6 MONTHS AGO)
     Route: 065

REACTIONS (8)
  - Thyroid hormones increased [Not Recovered/Not Resolved]
  - Thyroid cancer [Not Recovered/Not Resolved]
  - Dyspnoea [Recovering/Resolving]
  - Cardiomegaly [Not Recovered/Not Resolved]
  - Nervousness [Unknown]
  - Anxiety [Recovering/Resolving]
  - Hyperthyroidism [Not Recovered/Not Resolved]
  - Clumsiness [Unknown]

NARRATIVE: CASE EVENT DATE: 2020
